FAERS Safety Report 6274193-8 (Version None)
Quarter: 2009Q3

REPORT INFORMATION
  Report Type: 
  Country: None (occurrence: None)
  Receive Date: 20090720
  Receipt Date: 20090715
  Transmission Date: 20100115
  Serious: Yes (Life-Threatening)
  Sender: FDA-Public Use
  Company Number: FR-ASTRAZENECA-2009SE04872

PATIENT
  Age: 27073 Day
  Sex: Female

DRUGS (11)
  1. MOPRAL [Suspect]
     Route: 048
  2. HUMIRA [Suspect]
     Route: 058
     Dates: start: 20030201
  3. ARAVA [Suspect]
     Route: 048
     Dates: start: 20021201
  4. CORTANCYL [Suspect]
     Route: 048
  5. COVERSYL [Suspect]
     Route: 048
  6. DEPAKOTE [Suspect]
     Route: 048
  7. FOSAMAX [Suspect]
     Route: 048
  8. DETENSIEL [Suspect]
     Route: 048
  9. MIRTAZAPINE [Suspect]
     Route: 048
  10. NEURONTIN [Suspect]
     Route: 048
  11. TRAMADOL HCL [Suspect]
     Route: 048

REACTIONS (1)
  - PULMONARY EMBOLISM [None]
